FAERS Safety Report 11901850 (Version 4)
Quarter: 2017Q4

REPORT INFORMATION
  Report Type: Spontaneous
  Country: AU (occurrence: AU)
  Receive Date: 20160108
  Receipt Date: 20171107
  Transmission Date: 20180320
  Serious: Yes (Hospitalization, Other)
  Sender: FDA-Public Use
  Company Number: AU-PFIZER INC-2016000047

PATIENT
  Age: 30 Year
  Sex: Male

DRUGS (2)
  1. METRONIDAZOLE. [Suspect]
     Active Substance: METRONIDAZOLE
     Indication: GINGIVITIS
     Dosage: 400 MG, 3X/DAY
  2. AMOXYCILLIN [Concomitant]
     Active Substance: AMOXICILLIN
     Indication: GINGIVITIS
     Dosage: 500 MG, 3X/DAY

REACTIONS (6)
  - Tinnitus [Unknown]
  - Myalgia [Unknown]
  - Paraesthesia [Recovering/Resolving]
  - Headache [Recovering/Resolving]
  - Deafness bilateral [Recovering/Resolving]
  - Deafness neurosensory [Recovering/Resolving]
